FAERS Safety Report 8919390 (Version 2)
Quarter: 2013Q2

REPORT INFORMATION
  Report Type: Report from Study
  Country: BR (occurrence: BR)
  Receive Date: 20121121
  Receipt Date: 20130522
  Transmission Date: 20140414
  Serious: Yes (Death, Hospitalization, Other)
  Sender: FDA-Public Use
  Company Number: BR-BAYER-2012-117527

PATIENT
  Age: 58 Year
  Sex: Male

DRUGS (2)
  1. NEXAVAR [Suspect]
     Indication: HEPATOCELLULAR CARCINOMA
     Dosage: 400 MG, BID
     Route: 048
     Dates: start: 20121011, end: 20121020
  2. INSULIN [Concomitant]
     Dosage: UNK

REACTIONS (5)
  - Respiratory failure [Fatal]
  - General physical health deterioration [Recovering/Resolving]
  - Confusional state [Not Recovered/Not Resolved]
  - Eating disorder [None]
  - Dehydration [None]
